FAERS Safety Report 5531283-2 (Version None)
Quarter: 2007Q4

REPORT INFORMATION
  Report Type: 
  Country: None (occurrence: None)
  Receive Date: 20071127
  Receipt Date: 20071119
  Transmission Date: 20080405
  Serious: Yes (Life-Threatening)
  Sender: FDA-Public Use
  Company Number: E2020-01798-SPO-JP

PATIENT
  Age: 86 Year
  Sex: Female

DRUGS (11)
  1. ARICEPT [Suspect]
     Indication: DEMENTIA ALZHEIMER'S TYPE
     Dosage: 3 MG, 1 IN 1 D, ORAL
     Route: 048
     Dates: start: 20071018, end: 20071028
  2. ETICAM (ETIZOLAM) [Concomitant]
  3. DIAZEPAM [Concomitant]
  4. NICERGOLINE (NICERGOLINE) [Concomitant]
  5. CHOTO-SAN (CHINESE HERBAL MEDICINE) [Concomitant]
  6. BERIZYM (BERIZYM) [Concomitant]
  7. SERESNATT (DILTIAZEM) [Concomitant]
  8. CHIYOBAN (DISOPYRAMIDE) [Concomitant]
  9. KYORIN-AP (KYORIN AP 2) [Concomitant]
  10. YAKUBAN (FLURBIPROFEN) [Concomitant]
  11. CLAROYCIN (CLARITHROMYCIN) [Concomitant]

REACTIONS (3)
  - BRADYCARDIA [None]
  - CARDIO-RESPIRATORY ARREST [None]
  - DRUG LEVEL ABOVE THERAPEUTIC [None]
